FAERS Safety Report 6133722-5 (Version None)
Quarter: 2009Q1

REPORT INFORMATION
  Report Type: 
  Country: None (occurrence: None)
  Receive Date: 20090326
  Receipt Date: 20090320
  Transmission Date: 20090719
  Serious: Yes (Other)
  Sender: FDA-Public Use
  Company Number: B0566607A

PATIENT
  Sex: Male

DRUGS (6)
  1. TELZIR [Suspect]
     Indication: HIV INFECTION
     Route: 048
     Dates: start: 20050720, end: 20080411
  2. EPIVIR [Suspect]
     Indication: HIV INFECTION
     Route: 048
     Dates: end: 20051116
  3. ZIAGEN [Suspect]
     Indication: HIV INFECTION
     Route: 048
     Dates: end: 20051116
  4. KIVEXA [Suspect]
     Indication: HIV INFECTION
     Route: 048
  5. NORVIR [Suspect]
     Indication: HIV INFECTION
     Route: 048
  6. VIRAMUNE [Suspect]
     Indication: HIV INFECTION
     Route: 048
     Dates: start: 20080411

REACTIONS (2)
  - HEPATOTOXICITY [None]
  - LIPODYSTROPHY ACQUIRED [None]
